FAERS Safety Report 10245251 (Version 1)
Quarter: 2014Q2

REPORT INFORMATION
  Report Type: Spontaneous
  Country: FR (occurrence: FR)
  Receive Date: 20140618
  Receipt Date: 20140618
  Transmission Date: 20141212
  Serious: Yes (Other)
  Sender: FDA-Public Use
  Company Number: FR-ROCHE-1419416

PATIENT
  Age: 6 Year
  Sex: Male
  Weight: 34 kg

DRUGS (3)
  1. AVASTIN [Suspect]
     Indication: ASTROCYTOMA
     Dosage: 21.4286 MG
     Route: 042
     Dates: start: 20130221, end: 20130711
  2. IRINOTECAN [Suspect]
     Indication: ASTROCYTOMA
     Dosage: 8.9286 MG
     Route: 042
     Dates: start: 20130221, end: 20130711
  3. BACTRIM [Concomitant]
     Route: 065
     Dates: end: 201307

REACTIONS (1)
  - Lower limb fracture [Recovering/Resolving]
